FAERS Safety Report 9294090 (Version 2)
Quarter: 2013Q2

REPORT INFORMATION
  Report Type: Spontaneous
  Country: US (occurrence: None)
  Receive Date: 20130514
  Receipt Date: 20130531
  Transmission Date: 20140414
  Serious: Yes (Other)
  Sender: FDA-Public Use
  Company Number: JPI-P-031547

PATIENT
  Age: 68 Year
  Sex: Female

DRUGS (1)
  1. XYREM (500 MILLIGRAM/ MILLILITERS, SOLUTION) (SODIUM OXYBATE) [Suspect]
     Indication: NARCOLEPSY
     Dosage: (2.25GMS 2 IN 1 D)
     Route: 048
     Dates: start: 20121004

REACTIONS (4)
  - Bronchitis [None]
  - Rib fracture [None]
  - Atypical pneumonia [None]
  - Sneezing [None]
